FAERS Safety Report 5081154-3 (Version None)
Quarter: 2006Q3

REPORT INFORMATION
  Report Type: 
  Country: None (occurrence: None)
  Receive Date: 20060814
  Receipt Date: 20060814
  Transmission Date: 20061208
  Serious: Yes (Life-Threatening, Hospitalization)
  Sender: FDA-Public Use
  Company Number: None

PATIENT
  Age: 76 Year
  Sex: Male
  Weight: 85.2762 kg

DRUGS (3)
  1. ATROVENT HFA [Suspect]
     Indication: CHRONIC OBSTRUCTIVE PULMONARY DISEASE
     Dosage: 2 PUFFS QID PO
     Route: 048
     Dates: start: 20060803, end: 20060803
  2. ALBUTEROL [Concomitant]
  3. LEVALUTEROL HFA [Concomitant]

REACTIONS (1)
  - DYSPNOEA [None]
